FAERS Safety Report 12934226 (Version 4)
Quarter: 2016Q4

REPORT INFORMATION
  Report Type: Spontaneous
  Country: JP (occurrence: JP)
  Receive Date: 20161111
  Receipt Date: 20161128
  Transmission Date: 20170207
  Serious: Yes (Life-Threatening, Hospitalization, Other)
  Sender: FDA-Public Use
  Company Number: JP-ALLERGAN-1675344US

PATIENT
  Age: 47 Year
  Sex: Female

DRUGS (6)
  1. DOGMATYL [Concomitant]
     Active Substance: SULPIRIDE
     Indication: DEPRESSION
     Dosage: 0.05 G, QD
     Route: 048
     Dates: start: 20161011, end: 20161024
  2. SEPAZON [Concomitant]
     Active Substance: CLOXAZOLAM
     Indication: DEPRESSION
     Dosage: 0.05 G, QD
     Route: 048
     Dates: start: 20161011, end: 20161024
  3. DOGMATYL [Concomitant]
     Active Substance: SULPIRIDE
     Dosage: UNK
     Route: 048
     Dates: start: 20161025, end: 20161026
  4. LACTOSE [Concomitant]
     Active Substance: LACTOSE
     Indication: DEPRESSION
     Dosage: 0.75 G, QD
     Route: 048
     Dates: start: 20161011, end: 20161025
  5. ESCITALOPRAM OXALATE - BP [Suspect]
     Active Substance: ESCITALOPRAM OXALATE
     Indication: DEPRESSION
     Dosage: 10 MG, QD
     Route: 048
     Dates: start: 20161025, end: 20161025
  6. SEPAZON [Concomitant]
     Active Substance: CLOXAZOLAM
     Dosage: UNK
     Route: 048
     Dates: start: 20161025, end: 20161026

REACTIONS (7)
  - Skull fracture [Not Recovered/Not Resolved]
  - Contusion [Not Recovered/Not Resolved]
  - Fall [Not Recovered/Not Resolved]
  - Loss of consciousness [Recovered/Resolved]
  - Feeling abnormal [Recovered/Resolved]
  - Dizziness [Unknown]
  - Pyrexia [Recovered/Resolved]

NARRATIVE: CASE EVENT DATE: 20161026
